FAERS Safety Report 9739472 (Version 4)
Quarter: 2014Q1

REPORT INFORMATION
  Report Type: Spontaneous
  Country: JP (occurrence: JP)
  Receive Date: 20131209
  Receipt Date: 20140311
  Transmission Date: 20141002
  Serious: Yes (Other)
  Sender: FDA-Public Use
  Company Number: JP-UCBSA-105230

PATIENT
  Age: 64 Year
  Sex: Male

DRUGS (8)
  1. CIMZIA [Suspect]
     Indication: RHEUMATOID ARTHRITIS
     Dosage: 200 MG SYRINGE
     Route: 058
     Dates: start: 20130424, end: 20130924
  2. RHEUMATREX [Suspect]
     Indication: RHEUMATOID ARTHRITIS
     Dates: start: 20130410, end: 20130924
  3. FOLIAMIN [Concomitant]
     Dosage: UNKNOWN DOSE
     Route: 048
     Dates: start: 20130410
  4. LIPITOR [Concomitant]
     Dosage: UNKNOWN FREQUENCY
     Route: 048
  5. ZYLORIC [Concomitant]
     Dosage: UNKNOWN FREQUENCY
     Route: 048
  6. UNISIA [Concomitant]
     Dosage: UNKNOWN FREQUENCY
     Route: 048
  7. VOLTAREN SR [Concomitant]
     Route: 048
     Dates: start: 20121010
  8. GASTER D [Concomitant]
     Dosage: UNKNOWN FREQUENCY
     Route: 048
     Dates: start: 20121010

REACTIONS (4)
  - Cell marker increased [Recovered/Resolved]
  - Blood beta-D-glucan increased [Recovered/Resolved]
  - Computerised tomogram thorax abnormal [Recovered/Resolved]
  - Hepatic function abnormal [Recovered/Resolved]
